FAERS Safety Report 7404343-9 (Version None)
Quarter: 2011Q2

REPORT INFORMATION
  Report Type: 
  Country: None (occurrence: None)
  Receive Date: 20110408
  Receipt Date: 20110329
  Transmission Date: 20111010
  Serious: Yes (Other)
  Sender: FDA-Public Use
  Company Number: PHHY2011US25713

PATIENT
  Sex: Female

DRUGS (6)
  1. METOPROLOL [Concomitant]
     Dosage: 50 MG
  2. VITAMINS [Concomitant]
  3. RECLAST [Suspect]
     Dosage: 5 MG
     Route: 042
     Dates: start: 20110322
  4. NIACIN [Concomitant]
  5. CALCIUM [Concomitant]
  6. AMLODIPINE [Concomitant]
     Dosage: 5 MG

REACTIONS (5)
  - BACK PAIN [None]
  - SKIN BURNING SENSATION [None]
  - ERYTHEMA [None]
  - HERPES ZOSTER [None]
  - BLISTER [None]
